FAERS Safety Report 7019238-2 (Version None)
Quarter: 2010Q3

REPORT INFORMATION
  Report Type: 
  Country: None (occurrence: None)
  Receive Date: 20100928
  Receipt Date: 20100923
  Transmission Date: 20110219
  Serious: Yes (Hospitalization)
  Sender: FDA-Public Use
  Company Number: ES-AMGEN-QUU414682

PATIENT
  Age: 23 Year
  Sex: Male

DRUGS (2)
  1. ENBREL [Suspect]
     Indication: PSORIASIS
     Dates: start: 20081101, end: 20100201
  2. ENBREL [Suspect]
     Dates: start: 20100201, end: 20100510

REACTIONS (3)
  - MYOCARDITIS [None]
  - SYNCOPE [None]
  - VENTRICULAR HYPOKINESIA [None]
